FAERS Safety Report 9557498 (Version 1)
Quarter: 2013Q3

REPORT INFORMATION
  Report Type: Spontaneous
  Country: US (occurrence: None)
  Receive Date: 20130726
  Receipt Date: 20130726
  Transmission Date: 20140515
  Serious: Yes (Hospitalization)
  Sender: FDA-Public Use
  Company Number: UTC-020220

PATIENT
  Age: 62 Year
  Sex: Female
  Weight: 112.7 kg

DRUGS (4)
  1. REMODULIN (5 MG/ML, INJECTION FOR INFUSION (TREPROSTINIL SODIUM) [Suspect]
     Indication: COR PULMONALE CHRONIC
     Dosage: 1 IN 1 MIN.
  2. REMODULIN (5 MG/ML, INJECTION FOR INFUSION (TREPROSTINIL SODIUM) [Suspect]
     Indication: SEPSIS
     Dosage: 1 IN 1 MIN.
  3. COUMADIN (WARFARIN SODIUM) [Concomitant]
  4. TRACLEER (BOSENTAN) [Concomitant]

REACTIONS (2)
  - Device related infection [None]
  - Sepsis [None]
